FAERS Safety Report 9122670 (Version 2)
Quarter: 2013Q2

REPORT INFORMATION
  Report Type: Spontaneous
  Country: US (occurrence: US)
  Receive Date: 20130227
  Receipt Date: 20130415
  Transmission Date: 20140414
  Serious: No
  Sender: FDA-Public Use
  Company Number: US-PFIZER INC-2013067686

PATIENT
  Age: 14 Year
  Sex: Female
  Weight: 97.05 kg

DRUGS (2)
  1. GEODON [Suspect]
     Indication: MOOD ALTERED
     Dosage: 20 MG, 2X/DAY
     Route: 048
     Dates: start: 20130215
  2. INTUNIV [Concomitant]
     Indication: ATTENTION DEFICIT/HYPERACTIVITY DISORDER
     Dosage: 3 MG, 1X/DAY

REACTIONS (3)
  - Hypersomnia [Recovered/Resolved]
  - Somnolence [Recovered/Resolved]
  - Off label use [Unknown]
